FAERS Safety Report 8171516-X (Version None)
Quarter: 2012Q1

REPORT INFORMATION
  Report Type: 
  Country: None (occurrence: None)
  Receive Date: 20120228
  Receipt Date: 20120223
  Transmission Date: 20120608
  Serious: Yes (Other)
  Sender: FDA-Public Use
  Company Number: US-JNJFOC-20120213194

PATIENT
  Age: 25 Year
  Sex: Female
  Weight: 67.13 kg

DRUGS (2)
  1. IBUPROFEN [Concomitant]
     Indication: CYST
     Dosage: TWO CAPLETS AS NEEDED
     Route: 048
  2. VISINE TIRED EYE RELIEF [Suspect]
     Indication: ASTHENOPIA
     Dosage: TWO DROPS IN EACH EYE
     Route: 047
     Dates: start: 20120221, end: 20120221

REACTIONS (6)
  - APPLICATION SITE PAIN [None]
  - ACTIVITIES OF DAILY LIVING IMPAIRED [None]
  - FOREIGN BODY SENSATION IN EYES [None]
  - EXPIRED DRUG ADMINISTERED [None]
  - APPLICATION SITE DISCOLOURATION [None]
  - HEADACHE [None]
